FAERS Safety Report 5071267-4 (Version None)
Quarter: 2006Q3

REPORT INFORMATION
  Report Type: 
  Country: None (occurrence: None)
  Receive Date: 20060714
  Receipt Date: 20060427
  Transmission Date: 20061208
  Serious: No
  Sender: FDA-Public Use
  Company Number: 2006SP001867

PATIENT
  Age: 65 Year
  Sex: Male
  Weight: 136.0791 kg

DRUGS (5)
  1. LUNESTA [Suspect]
     Indication: INSOMNIA
     Dosage: 3 MG; HS; ORAL
     Route: 048
     Dates: start: 20060301, end: 20060301
  2. PAXIL [Suspect]
     Indication: ANXIETY
     Dosage: ORAL
     Route: 048
     Dates: start: 20060401
  3. LOPRESSOR [Concomitant]
  4. DIOVANE [Concomitant]
  5. ZESTRIL [Concomitant]

REACTIONS (4)
  - HEADACHE [None]
  - INSOMNIA [None]
  - RETCHING [None]
  - VISION BLURRED [None]
